FAERS Safety Report 17130985 (Version 1)
Quarter: 2019Q4

REPORT INFORMATION
  Report Type: Spontaneous
  Country: US (occurrence: US)
  Receive Date: 20191209
  Receipt Date: 20191209
  Transmission Date: 20200122
  Serious: Yes (Hospitalization)
  Sender: FDA-Public Use
  Company Number: US-ROCHE-2377953

PATIENT
  Age: 18 Year
  Sex: Female

DRUGS (2)
  1. ALCOHOL. [Concomitant]
     Active Substance: ALCOHOL
     Route: 065
  2. DIAZEPAM. [Suspect]
     Active Substance: DIAZEPAM
     Indication: PRODUCT USED FOR UNKNOWN INDICATION
     Route: 048

REACTIONS (2)
  - Overdose [Recovered/Resolved]
  - Coma [Recovered/Resolved]
